FAERS Safety Report 8005544-1 (Version None)
Quarter: 2011Q4

REPORT INFORMATION
  Report Type: 
  Country: None (occurrence: None)
  Receive Date: 20111223
  Receipt Date: 20111215
  Transmission Date: 20120403
  Serious: Yes (Hospitalization)
  Sender: FDA-Public Use
  Company Number: AU-JNJFOC-20111202655

PATIENT
  Sex: Male
  Weight: 108 kg

DRUGS (4)
  1. INVEGA SUSTENNA [Suspect]
     Indication: SCHIZOPHRENIA
     Route: 030
     Dates: start: 20111124
  2. INVEGA SUSTENNA [Suspect]
     Route: 030
     Dates: start: 20110728
  3. FLUVOXAMINE MALEATE [Concomitant]
     Indication: DEPRESSION
     Dates: start: 20090301, end: 20111204
  4. LITHIUM [Concomitant]
     Indication: SCHIZOPHRENIA
     Dates: start: 20090401

REACTIONS (1)
  - SCHIZOPHRENIA [None]
